FAERS Safety Report 13154698 (Version 2)
Quarter: 2017Q3

REPORT INFORMATION
  Report Type: Report from Study
  Country: US (occurrence: US)
  Receive Date: 20170126
  Receipt Date: 20170726
  Transmission Date: 20171127
  Serious: No
  Sender: FDA-Public Use
  Company Number: US-AMGEN-USASL2016142107

PATIENT
  Age: 88 Year
  Sex: Male

DRUGS (1)
  1. KYPROLIS [Suspect]
     Active Substance: CARFILZOMIB
     Indication: PLASMA CELL MYELOMA
     Dosage: UNK ONCE A WEEK EVERY OTHER WEEK
     Route: 065

REACTIONS (3)
  - Muscle tightness [Unknown]
  - Fatigue [Unknown]
  - Off label use [Unknown]
